FAERS Safety Report 5528591-8 (Version None)
Quarter: 2007Q4

REPORT INFORMATION
  Report Type: 
  Country: None (occurrence: None)
  Receive Date: 20071121
  Receipt Date: 20071114
  Transmission Date: 20080405
  Serious: Yes (Death, Life-Threatening)
  Sender: FDA-Public Use
  Company Number: WAES 0708DEU00022

PATIENT
  Age: 53 Year
  Sex: Male

DRUGS (43)
  1. CANCIDAS [Suspect]
     Indication: SYSTEMIC CANDIDA
     Dosage: IV
     Route: 042
     Dates: start: 20070806, end: 20070806
  2. CANCIDAS [Concomitant]
  3. ALBUMIN (HUMAN) [Concomitant]
  4. AMINO ACIDS (UNSPECIFIED) [Concomitant]
  5. AMIODARAONE [Concomitant]
  6. BISOPROLOL FUMARATE [Concomitant]
  7. BUTYLSCOPOLAMINE BROMIDE [Concomitant]
  8. CALCIUM (UNSPECIFIED) [Concomitant]
  9. CHOLECALCIFEROL [Concomitant]
  10. CLARITHROMYCIN [Concomitant]
  11. DIGITOXIN TAB [Concomitant]
  12. DIMENHYDRINATE [Concomitant]
  13. DIPYRONE [Concomitant]
  14. DOBUTAMINE HCL [Concomitant]
  15. EPINEPHRINE [Concomitant]
  16. ETOMIDATE [Concomitant]
  17. FLUCONAZOLE [Concomitant]
  18. FUROSEMIDE [Concomitant]
  19. HEPARIN [Concomitant]
  20. HYDROCORTISONE [Concomitant]
  21. INSULIN [Concomitant]
  22. LACTULOSE [Concomitant]
  23. LEVOFLOXACIN [Concomitant]
  24. MEPERIDINE HCL [Concomitant]
  25. MEROPENEM [Concomitant]
  26. METOCLOPRAMIDE HYDROCHLORIDE [Concomitant]
  27. METOPROLOL TARTRATE [Concomitant]
  28. METRONIDAZOLE [Concomitant]
  29. MIDAZOLAM HCL [Concomitant]
  30. MORPHINESO4 [Concomitant]
  31. NOREPINEPHRINE HYDROCHLORIDE [Concomitant]
  32. PANTOPRAZOLE SODIUM [Concomitant]
  33. PHYTONADIONE [Concomitant]
  34. PIPERACILLIN SODIUM (+) TAZOBACTAM SODIU [Concomitant]
  35. POLYETHYLENE GLYCOL 3350/KCL/NAHCO3/NACL [Concomitant]
  36. PREDNISONE TAB [Concomitant]
  37. RAMIPRIL [Concomitant]
  38. ROCURONIUM BROMIDE [Concomitant]
  39. SPIRONOLACTONE [Concomitant]
  40. SUFENTANIL CITRATE [Concomitant]
  41. TEMAZEPAM [Concomitant]
  42. TORESEMIDE [Concomitant]
  43. TRAMADOL HCL [Concomitant]

REACTIONS (3)
  - ENTEROCOCCAL SEPSIS [None]
  - HEPATITIS TOXIC [None]
  - SEPTIC SHOCK [None]
